FAERS Safety Report 15474692 (Version 2)
Quarter: 2018Q4

REPORT INFORMATION
  Report Type: Spontaneous
  Country: CA (occurrence: CA)
  Receive Date: 20181008
  Receipt Date: 20181228
  Transmission Date: 20190205
  Serious: Yes (Death, Life-Threatening, Other)
  Sender: FDA-Public Use
  Company Number: CA-GILEAD-2018-0366423

PATIENT
  Age: 63 Year
  Sex: Male
  Weight: 58.96 kg

DRUGS (8)
  1. SPIRIVA [Concomitant]
     Active Substance: TIOTROPIUM BROMIDE MONOHYDRATE
  2. EPCLUSA [Suspect]
     Active Substance: SOFOSBUVIR\VELPATASVIR
     Indication: CHRONIC HEPATITIS C
     Dosage: 1 DF, QD
     Route: 048
     Dates: start: 20170711, end: 201709
  3. ASA [Concomitant]
     Active Substance: ASPIRIN
  4. IRBESARTAN. [Concomitant]
     Active Substance: IRBESARTAN
  5. FORXIGA [Concomitant]
     Active Substance: DAPAGLIFLOZIN
  6. INSULIN [Concomitant]
     Active Substance: INSULIN NOS
     Dosage: UNK
  7. LANTUS [Concomitant]
     Active Substance: INSULIN GLARGINE
  8. RABEPRAZOLE [Concomitant]
     Active Substance: RABEPRAZOLE

REACTIONS (9)
  - Asthenia [Fatal]
  - Pancreatic carcinoma metastatic [Fatal]
  - Pancreatic mass [Fatal]
  - Adenocarcinoma [Fatal]
  - Adenocarcinoma pancreas [Fatal]
  - Hepatic neoplasm [Fatal]
  - Decreased appetite [Fatal]
  - Weight decreased [Fatal]
  - Hepatic cancer [Fatal]

NARRATIVE: CASE EVENT DATE: 201709
